FAERS Safety Report 21209162 (Version 1)
Quarter: 2022Q3

REPORT INFORMATION
  Report Type: Spontaneous
  Country: US (occurrence: US)
  Receive Date: 20220812
  Receipt Date: 20220812
  Transmission Date: 20221027
  Serious: Yes (Other)
  Sender: FDA-Public Use
  Company Number: US-ALVOGEN-2022-ALVOGEN-120727

PATIENT
  Age: 51 Year
  Sex: Female

DRUGS (15)
  1. CLINDAMYCIN [Suspect]
     Active Substance: CLINDAMYCIN
     Indication: Babesiosis
     Route: 048
  2. DAPSONE [Suspect]
     Active Substance: DAPSONE
     Indication: Babesiosis
  3. ATOVAQUONE [Suspect]
     Active Substance: ATOVAQUONE
     Indication: Babesiosis
     Route: 048
  4. AZITHROMYCIN [Suspect]
     Active Substance: AZITHROMYCIN
     Indication: Babesiosis
     Route: 048
  5. HYDROXYCHLOROQUINE [Suspect]
     Active Substance: HYDROXYCHLOROQUINE
     Indication: Babesiosis
     Route: 048
  6. CEFDINIR [Suspect]
     Active Substance: CEFDINIR
     Indication: Babesiosis
     Route: 048
  7. NYSTATIN [Suspect]
     Active Substance: NYSTATIN
     Indication: Babesiosis
     Dosage: 500,000 UNITS
  8. MALARONE [Suspect]
     Active Substance: ATOVAQUONE\PROGUANIL HYDROCHLORIDE
     Indication: Babesiosis
     Dosage: 100/250 MG
  9. HERBALS [Suspect]
     Active Substance: HERBALS
     Indication: Babesiosis
  10. DOXYCYCLINE [Suspect]
     Active Substance: DOXYCYCLINE
     Indication: Babesiosis
  11. HERBALS [Suspect]
     Active Substance: HERBALS
     Indication: Babesiosis
     Dosage: 30 DROPS TWICE A DAY
  12. RIFAMPIN [Suspect]
     Active Substance: RIFAMPIN
     Indication: Babesiosis
  13. HYDROXYCHLOROQUINE DIPHOSPHATE [Suspect]
     Active Substance: HYDROXYCHLOROQUINE DIPHOSPHATE
     Indication: Babesiosis
  14. MINOCYCLINE [Suspect]
     Active Substance: MINOCYCLINE HYDROCHLORIDE
     Indication: Babesiosis
     Route: 048
  15. COARTEM [Suspect]
     Active Substance: ARTEMETHER\LUMEFANTRINE
     Indication: Babesiosis
     Dosage: 4 PO BID

REACTIONS (7)
  - Lyme disease [Recovered/Resolved]
  - Disease recurrence [Recovered/Resolved]
  - Drug ineffective [Recovered/Resolved]
  - Anaemia [Recovered/Resolved]
  - Nausea [Recovered/Resolved]
  - Vomiting [Recovered/Resolved]
  - Fungal infection [Recovered/Resolved]
